FAERS Safety Report 23408266 (Version 1)
Quarter: 2024Q1

REPORT INFORMATION
  Report Type: Report from Study
  Country: IL (occurrence: IL)
  Receive Date: 20240117
  Receipt Date: 20240117
  Transmission Date: 20240410
  Serious: Yes (Death)
  Sender: FDA-Public Use
  Company Number: IL-ABBVIE-5590279

PATIENT
  Age: 74 Year
  Sex: Female

DRUGS (2)
  1. CARBIDOPA\LEVODOPA [Suspect]
     Active Substance: CARBIDOPA\LEVODOPA
     Indication: Parkinson^s disease
     Dosage: MORNING DOSE 13.0ML, CONTINUOUS DOSE 3.8ML/HOUR, EXTRA DOSE 1.9ML
     Route: 050
     Dates: end: 20240114
  2. CARBIDOPA\LEVODOPA [Suspect]
     Active Substance: CARBIDOPA\LEVODOPA
     Route: 050
     Dates: start: 20221012

REACTIONS (5)
  - Malaise [Fatal]
  - Cardiac arrest [Fatal]
  - Loss of consciousness [Fatal]
  - Procedural failure [Unknown]
  - Cerebral disorder [Fatal]

NARRATIVE: CASE EVENT DATE: 20240114
